FAERS Safety Report 15769888 (Version 3)
Quarter: 2019Q1

REPORT INFORMATION
  Report Type: Report from Study
  Country: US (occurrence: US)
  Receive Date: 20181228
  Receipt Date: 20190109
  Transmission Date: 20190417
  Serious: Yes (Hospitalization, Other)
  Sender: FDA-Public Use
  Company Number: US-GILEAD-2018-0370613

PATIENT
  Age: 38 Year
  Sex: Male

DRUGS (4)
  1. VELETRI [Concomitant]
     Active Substance: EPOPROSTENOL
  2. UPTRAVI [Concomitant]
     Active Substance: SELEXIPAG
  3. DILTIAZEM. [Concomitant]
     Active Substance: DILTIAZEM
  4. AMBRISENTAN [Suspect]
     Active Substance: AMBRISENTAN
     Indication: PRODUCT USED FOR UNKNOWN INDICATION
     Dosage: 10 MG, QD
     Route: 065
     Dates: start: 20181019

REACTIONS (10)
  - Anxiety [Not Recovered/Not Resolved]
  - Device issue [Not Recovered/Not Resolved]
  - Pain [Unknown]
  - Sepsis [Unknown]
  - Device leakage [Not Recovered/Not Resolved]
  - Sinus pain [Not Recovered/Not Resolved]
  - Catheter site infection [Unknown]
  - Hypertension [Not Recovered/Not Resolved]
  - Pain in extremity [Not Recovered/Not Resolved]
  - Hypersensitivity [Unknown]

NARRATIVE: CASE EVENT DATE: 20181027
